FAERS Safety Report 23564145 (Version 2)
Quarter: 2024Q1

REPORT INFORMATION
  Report Type: Report from Study
  Country: US (occurrence: US)
  Receive Date: 20240226
  Receipt Date: 20240313
  Transmission Date: 20240410
  Serious: Yes (Other)
  Sender: FDA-Public Use
  Company Number: US-ABBVIE-5647569

PATIENT
  Sex: Male

DRUGS (1)
  1. HUMIRA [Suspect]
     Active Substance: ADALIMUMAB
     Indication: Psoriasis
     Route: 058
     Dates: start: 20231222

REACTIONS (5)
  - Complication associated with device [Unknown]
  - Pain [Recovering/Resolving]
  - Choking [Unknown]
  - Alopecia [Not Recovered/Not Resolved]
  - Skin plaque [Unknown]
